FAERS Safety Report 17190655 (Version 1)
Quarter: 2019Q4

REPORT INFORMATION
  Report Type: Other
  Country: AT (occurrence: AT)
  Receive Date: 20191223
  Receipt Date: 20191223
  Transmission Date: 20200122
  Serious: Yes (Hospitalization)
  Sender: FDA-Public Use
  Company Number: AT-LEADING PHARMA, LLC-2078099

PATIENT
  Age: 26 Year
  Sex: Male

DRUGS (3)
  1. VALPROIC ACID. [Suspect]
     Active Substance: VALPROIC ACID
     Route: 065
  2. RISPERIDONE. [Suspect]
     Active Substance: RISPERIDONE
     Route: 065
  3. LORAZEPAM. [Suspect]
     Active Substance: LORAZEPAM
     Indication: MANIA
     Route: 065

REACTIONS (3)
  - Mania [Recovered/Resolved]
  - Hyperammonaemic encephalopathy [Recovered/Resolved]
  - Narcolepsy [Recovered/Resolved]
